FAERS Safety Report 12780075 (Version 1)
Quarter: 2016Q3

REPORT INFORMATION
  Report Type: Spontaneous
  Country: BR (occurrence: US)
  Receive Date: 20160926
  Receipt Date: 20160926
  Transmission Date: 20161109
  Serious: Yes (Other)
  Sender: FDA-Public Use
  Company Number: None

PATIENT
  Age: 55 Year
  Sex: Male
  Weight: 75 kg

DRUGS (1)
  1. VORTIOXETINE, 20 MG [Suspect]
     Active Substance: VORTIOXETINE
     Indication: DEPRESSION
     Route: 002
     Dates: start: 20160401, end: 20160713

REACTIONS (3)
  - Blood testosterone increased [None]
  - Neoplasm prostate [None]
  - Post procedural complication [None]

NARRATIVE: CASE EVENT DATE: 20160608
